FAERS Safety Report 8612192 (Version 3)
Quarter: 2013Q4

REPORT INFORMATION
  Report Type: Spontaneous
  Country: US (occurrence: US)
  Receive Date: 20120530
  Receipt Date: 20131108
  Transmission Date: 20140711
  Serious: Yes (Disabling)
  Sender: FDA-Public Use
  Company Number: US-009507513-2012SP027224

PATIENT
  Age: 48 Year
  Sex: Male

DRUGS (3)
  1. NASONEX [Suspect]
     Indication: RHINITIS ALLERGIC
     Dosage: 200 ?G, QD
     Route: 045
  2. NASONEX [Suspect]
     Dosage: 100 ?G, UNK
  3. ZYRTEC [Concomitant]
     Indication: PRODUCT USED FOR UNKNOWN INDICATION

REACTIONS (3)
  - Dizziness [Unknown]
  - Nausea [Unknown]
  - Impaired work ability [Unknown]
